FAERS Safety Report 9230164 (Version 5)
Quarter: 2014Q2

REPORT INFORMATION
  Report Type: Report from Study
  Country: US (occurrence: US)
  Receive Date: 20130415
  Receipt Date: 20140605
  Transmission Date: 20141212
  Serious: Yes (Death, Hospitalization, Other)
  Sender: FDA-Public Use
  Company Number: US-JNJFOC-20130403186

PATIENT
  Age: 56 Year
  Sex: Female
  Weight: 86.18 kg

DRUGS (10)
  1. REMICADE [Suspect]
     Indication: RHEUMATOID ARTHRITIS
     Dosage: APPROXIMATELY 66 INFUSIONS
     Route: 042
     Dates: start: 20010530, end: 20120207
  2. METHOTREXATE [Suspect]
     Indication: RHEUMATOID ARTHRITIS
     Route: 048
     Dates: start: 19981211, end: 201202
  3. SYNTHROID [Concomitant]
     Indication: HYPOTHYROIDISM
     Route: 048
     Dates: start: 200805, end: 201205
  4. PRILOSEC [Concomitant]
     Indication: GASTROOESOPHAGEAL REFLUX DISEASE
     Route: 048
  5. FLEXERIL [Concomitant]
     Indication: MUSCLE SPASMS
     Route: 048
  6. AVAPRO [Concomitant]
     Indication: HYPERTENSION
     Route: 048
  7. AVAPRO [Concomitant]
     Indication: HYPERTENSION
     Route: 048
     Dates: start: 2008, end: 2010
  8. CALCIUM W/VITAMIN D [Concomitant]
     Indication: OSTEOPOROSIS
     Route: 048
  9. ALLEGRA [Concomitant]
     Indication: MULTIPLE ALLERGIES
     Route: 048
  10. NEXIUM [Concomitant]
     Indication: GASTROOESOPHAGEAL REFLUX DISEASE
     Route: 048
     Dates: start: 201201, end: 2012

REACTIONS (12)
  - Hepatic cancer metastatic [Fatal]
  - Malignant pleural effusion [Unknown]
  - Leukocytosis [Unknown]
  - Thrombocytopenia [Unknown]
  - Monoclonal gammopathy [Unknown]
  - Hypothyroidism [Unknown]
  - Gastrooesophageal reflux disease [Unknown]
  - Sepsis [Recovering/Resolving]
  - Hypoalbuminaemia [Unknown]
  - Urinary tract infection [Unknown]
  - Dehydration [Unknown]
  - Hypotension [Unknown]
